FAERS Safety Report 4949641-3 (Version None)
Quarter: 2006Q1

REPORT INFORMATION
  Report Type: 
  Country: None (occurrence: None)
  Receive Date: 20060316
  Receipt Date: 20060301
  Transmission Date: 20060701
  Serious: Yes (Hospitalization)
  Sender: FDA-Public Use
  Company Number: 2006US002860

PATIENT
  Age: 54 Year
  Sex: Female
  Weight: 46.3 kg

DRUGS (17)
  1. ALOXI [Suspect]
     Indication: PROPHYLAXIS OF NAUSEA AND VOMITING
     Dosage: 0.25 MG, QWK, IV BOLUS
     Route: 040
     Dates: start: 20051007
  2. BENADRYL [Concomitant]
  3. DECADRON [Concomitant]
  4. ZANTAC [Concomitant]
  5. SODIUM CHLORIDE [Concomitant]
  6. ERBITUX (CETUXIMAB) [Concomitant]
  7. TAXOL [Concomitant]
  8. OXALIPLATIN (OXALIPLATIN) [Concomitant]
  9. LEUCOVORIN CALCIUM [Concomitant]
  10. FLUOROURACIL [Concomitant]
  11. LEUKINE [Concomitant]
  12. NEUPOGEN [Concomitant]
  13. CALCIUM GLUCONATE [Concomitant]
  14. MAGNESIUM SULFATE [Concomitant]
  15. GLUTATHIONE (GLUTATHIONE) [Concomitant]
  16. EMEND [Concomitant]
  17. PROCRIT [Concomitant]

REACTIONS (23)
  - ABDOMINAL PAIN [None]
  - ANXIETY [None]
  - BACK PAIN [None]
  - BLOOD ELECTROLYTES ABNORMAL [None]
  - BLOOD PRESSURE DIASTOLIC DECREASED [None]
  - BLOOD PRESSURE IMMEASURABLE [None]
  - BLOOD PRESSURE INCREASED [None]
  - CHEST PAIN [None]
  - CLONIC CONVULSION [None]
  - CLONUS [None]
  - DIARRHOEA [None]
  - DYSPNOEA [None]
  - DYSTONIA [None]
  - FEELING HOT [None]
  - HEART RATE INCREASED [None]
  - HYPERHIDROSIS [None]
  - LOSS OF CONSCIOUSNESS [None]
  - MUSCLE SPASMS [None]
  - NEUROPATHY [None]
  - NEUROPATHY PERIPHERAL [None]
  - OXYGEN SATURATION DECREASED [None]
  - PULSE PRESSURE DECREASED [None]
  - RASH [None]
